FAERS Safety Report 20519829 (Version 1)
Quarter: 2022Q1

REPORT INFORMATION
  Report Type: Spontaneous
  Country: US (occurrence: None)
  Receive Date: 20220225
  Receipt Date: 20220225
  Transmission Date: 20220423
  Serious: Yes (Other)
  Sender: FDA-Public Use
  Company Number: None

PATIENT
  Age: 31 Year
  Sex: Female
  Weight: 63 kg

DRUGS (1)
  1. BUPRENORPHINE HYDROCHLORIDE [Suspect]
     Active Substance: BUPRENORPHINE HYDROCHLORIDE
     Indication: Product used for unknown indication
     Dosage: OTHER STRENGTH : NA;?OTHER QUANTITY : 2 NA;?FREQUENCY : TWICE A DAY;?
     Route: 060
     Dates: start: 20161003

REACTIONS (4)
  - Gingival bleeding [None]
  - Tooth fracture [None]
  - Dental caries [None]
  - Tooth discolouration [None]

NARRATIVE: CASE EVENT DATE: 20191003
